FAERS Safety Report 6971959-3 (Version None)
Quarter: 2010Q3

REPORT INFORMATION
  Report Type: 
  Country: None (occurrence: None)
  Receive Date: 20100908
  Receipt Date: 20100908
  Transmission Date: 20110219
  Serious: Yes (Life-Threatening)
  Sender: FDA-Public Use
  Company Number: None

PATIENT
  Sex: Female
  Weight: 58.9676 kg

DRUGS (2)
  1. OXYCONTIN [Suspect]
     Indication: PAIN
     Dosage: 3 TABLETS (60MG) TID PO (047)
     Route: 048
     Dates: start: 20100902
  2. OXYCONTIN [Suspect]
     Indication: ROAD TRAFFIC ACCIDENT
     Dosage: 3 TABLETS (60MG) TID PO (047)
     Route: 048
     Dates: start: 20100902

REACTIONS (6)
  - ANXIETY [None]
  - DRUG EFFECT DELAYED [None]
  - PRODUCT FORMULATION ISSUE [None]
  - PRURITUS [None]
  - RASH [None]
  - THROAT TIGHTNESS [None]
